FAERS Safety Report 20066202 (Version 2)
Quarter: 2022Q1

REPORT INFORMATION
  Report Type: Spontaneous
  Country: US (occurrence: US)
  Receive Date: 20211114
  Receipt Date: 20220107
  Transmission Date: 20220424
  Serious: No
  Sender: FDA-Public Use
  Company Number: US-BoehringerIngelheim-2021-BI-138188

PATIENT
  Sex: Male

DRUGS (1)
  1. CATAPRES-TTS [Suspect]
     Active Substance: CLONIDINE
     Indication: Product used for unknown indication
     Dosage: CHANGE PATCHES DAILY?FOA: CATAPRES TTS-1 AND 3 PATCH

REACTIONS (1)
  - Intentional product misuse [Unknown]
